FAERS Safety Report 24210557 (Version 1)
Quarter: 2024Q3

REPORT INFORMATION
  Report Type: Report from Study
  Country: US (occurrence: US)
  Receive Date: 20240814
  Receipt Date: 20240814
  Transmission Date: 20241016
  Serious: Yes (Hospitalization)
  Sender: JOHNSON AND JOHNSON
  Company Number: US-JNJFOC-20240520130

PATIENT
  Age: 47 Year
  Sex: Female
  Weight: 103.6 kg

DRUGS (23)
  1. SELEXIPAG [Suspect]
     Active Substance: SELEXIPAG
     Indication: Pulmonary arterial hypertension
     Route: 048
  2. SELEXIPAG [Suspect]
     Active Substance: SELEXIPAG
     Route: 048
     Dates: start: 20230929, end: 20240604
  3. TADALAFIL [Suspect]
     Active Substance: TADALAFIL
     Indication: Product used for unknown indication
     Route: 065
  4. ELIQUIS [Concomitant]
     Active Substance: APIXABAN
  5. INSULIN HUMAN [Concomitant]
     Active Substance: INSULIN HUMAN
  6. MIDAMOR [Concomitant]
     Active Substance: AMILORIDE HYDROCHLORIDE
  7. BUMEX [Concomitant]
     Active Substance: BUMETANIDE
  8. REPATHA [Concomitant]
     Active Substance: EVOLOCUMAB
     Dosage: 140 MG/ML SYRINGE
  9. ZETIA [Concomitant]
     Active Substance: EZETIMIBE
  10. TRICOR [Concomitant]
     Active Substance: FENOFIBRATE
  11. FUROSCIX [Concomitant]
     Active Substance: FUROSEMIDE
     Dosage: 80/10 MG/ML CTKT
  12. SYNTHROID [Concomitant]
     Active Substance: LEVOTHYROXINE SODIUM
  13. MAGNESIUM OXIDE [Concomitant]
     Active Substance: MAGNESIUM OXIDE
  14. MELATONIN [Concomitant]
     Active Substance: MELATONIN
  15. MELATONIN [Concomitant]
     Active Substance: MELATONIN
  16. ROBAXIN [Concomitant]
     Active Substance: METHOCARBAMOL
  17. TOPROL XL [Concomitant]
     Active Substance: METOPROLOL SUCCINATE
  18. PRILOSEC [Concomitant]
     Active Substance: OMEPRAZOLE MAGNESIUM
  19. POTASSIUM CHLORIDE [Concomitant]
     Active Substance: POTASSIUM CHLORIDE
  20. LYRICA [Concomitant]
     Active Substance: PREGABALIN
  21. PHENERGAN [Concomitant]
     Active Substance: PROMETHAZINE HYDROCHLORIDE
  22. ZOLOFT [Concomitant]
     Active Substance: SERTRALINE HYDROCHLORIDE
  23. ALDACTONE [Concomitant]
     Active Substance: SPIRONOLACTONE

REACTIONS (2)
  - Fluid retention [Recovered/Resolved]
  - Off label use [Unknown]

NARRATIVE: CASE EVENT DATE: 20240503
